FAERS Safety Report 7486613-1 (Version None)
Quarter: 2011Q2

REPORT INFORMATION
  Report Type: 
  Country: None (occurrence: None)
  Receive Date: 20110517
  Receipt Date: 20110505
  Transmission Date: 20111010
  Serious: Yes (Hospitalization, Other)
  Sender: FDA-Public Use
  Company Number: SE-AMGEN-SWESP2011024703

PATIENT
  Age: 77 Year
  Sex: Male

DRUGS (13)
  1. ALVEDON [Concomitant]
     Dosage: UNK
  2. ATENOLOL [Concomitant]
     Dosage: UNK
  3. ASPIRIN AND DIPYRIDAMOLE [Concomitant]
     Dosage: UNK
  4. FURIX [Concomitant]
     Dosage: UNK
  5. OMEPRAZOLE [Concomitant]
     Dosage: UNK
  6. FOLACIN                            /00198401/ [Concomitant]
     Dosage: UNK
  7. TROMBYL [Concomitant]
     Dosage: UNK
  8. ENBREL [Suspect]
     Indication: RHEUMATOID ARTHRITIS
     Dosage: 50 MG, WEEKLY
     Route: 058
     Dates: end: 20100701
  9. POLYVINYL ALCOHOL [Concomitant]
     Dosage: UNK
  10. CALCICHEW-D3 [Concomitant]
     Dosage: UNK
  11. BRUFEN                             /00109201/ [Concomitant]
     Dosage: UNK
  12. ENBREL [Suspect]
     Dosage: 50 MG, WEEKLY
     Route: 058
     Dates: end: 20101114
  13. REPAGLINIDE [Concomitant]
     Dosage: UNK

REACTIONS (3)
  - PERITONITIS [None]
  - TOOTH INFECTION [None]
  - SEPSIS [None]
